FAERS Safety Report 21242057 (Version 1)
Quarter: 2022Q3

REPORT INFORMATION
  Report Type: Spontaneous
  Country: US (occurrence: US)
  Receive Date: 20220823
  Receipt Date: 20220823
  Transmission Date: 20221027
  Serious: Yes (Death)
  Sender: FDA-Public Use
  Company Number: US-ABBVIE-22K-163-4513181-00

PATIENT
  Age: 57 Year
  Sex: Female

DRUGS (3)
  1. RINVOQ [Suspect]
     Active Substance: UPADACITINIB
     Indication: Rheumatoid arthritis
     Route: 048
     Dates: start: 20220713
  2. RINVOQ [Suspect]
     Active Substance: UPADACITINIB
     Indication: Ankylosing spondylitis
  3. RINVOQ [Suspect]
     Active Substance: UPADACITINIB
     Indication: Pyoderma gangrenosum

REACTIONS (1)
  - Death [Fatal]

NARRATIVE: CASE EVENT DATE: 20220811
